FAERS Safety Report 5520488-2 (Version None)
Quarter: 2007Q4

REPORT INFORMATION
  Report Type: 
  Country: None (occurrence: None)
  Receive Date: 20071119
  Receipt Date: 20071107
  Transmission Date: 20080405
  Serious: Yes (Life-Threatening, Hospitalization)
  Sender: FDA-Public Use
  Company Number: JP-ELI_LILLY_AND_COMPANY-JP200710005424

PATIENT
  Age: 63 Year
  Sex: Male

DRUGS (1)
  1. GEMZAR [Suspect]
     Indication: PANCREATIC CARCINOMA STAGE IV
     Route: 065
     Dates: end: 20070412

REACTIONS (2)
  - DISSEMINATED INTRAVASCULAR COAGULATION [None]
  - ENDOCARDITIS [None]
